FAERS Safety Report 4362938-3 (Version None)
Quarter: 2004Q2

REPORT INFORMATION
  Report Type: 
  Country: None (occurrence: None)
  Receive Date: 20040518
  Receipt Date: 20040510
  Transmission Date: 20050107
  Serious: Yes (Hospitalization)
  Sender: FDA-Public Use
  Company Number: 2004PK00839

PATIENT
  Age: 73 Year
  Sex: Female
  Weight: 52 kg

DRUGS (7)
  1. METOPROLOL SUCCINATE [Suspect]
     Indication: TACHYARRHYTHMIA
     Dosage: 95 MG DAILY PO
     Route: 048
     Dates: start: 20030724, end: 20030908
  2. DIGITOXIN TAB [Suspect]
     Indication: TACHYARRHYTHMIA
     Dosage: 0.07 MG DAILY PO
     Route: 048
     Dates: start: 20030724, end: 20030830
  3. ASPIRIN [Concomitant]
  4. DELIX [Concomitant]
  5. INSULIN ACTRAPHANE [Concomitant]
  6. PANTOZOL [Concomitant]
  7. SAROTEN RETARD [Concomitant]

REACTIONS (3)
  - ATRIAL FIBRILLATION [None]
  - BRADYARRHYTHMIA [None]
  - DRUG INTERACTION [None]
